FAERS Safety Report 18131205 (Version 1)
Quarter: 2020Q3

REPORT INFORMATION
  Report Type: Spontaneous
  Country: ID (occurrence: ID)
  Receive Date: 20200810
  Receipt Date: 20200810
  Transmission Date: 20201103
  Serious: Yes (Death, Other)
  Sender: FDA-Public Use
  Company Number: ID-FRESENIUS KABI-FK202008192

PATIENT
  Sex: Female

DRUGS (2)
  1. MAGNESIUM SULFATE (MANUFACTURER UNKNOWN) [Suspect]
     Active Substance: MAGNESIUM SULFATE
     Indication: PRE-ECLAMPSIA
     Dosage: 4G IN 20ML OVER 15 TO 20 MINUTES
     Route: 042
  2. MAGNESIUM SULFATE (MANUFACTURER UNKNOWN) [Suspect]
     Active Substance: MAGNESIUM SULFATE
     Route: 042

REACTIONS (4)
  - Toxicity to various agents [Unknown]
  - Exposure during pregnancy [Unknown]
  - Hypermagnesaemia [Recovered/Resolved]
  - Septic shock [Fatal]
